FAERS Safety Report 16022512 (Version 6)
Quarter: 2020Q1

REPORT INFORMATION
  Report Type: Spontaneous
  Country: CA (occurrence: CA)
  Receive Date: 20190301
  Receipt Date: 20200101
  Transmission Date: 20200409
  Serious: Yes (Congenital Anomaly, Other)
  Sender: FDA-Public Use
  Company Number: CA-AUROBINDO-AUR-APL-2019-010641

PATIENT
  Age: 52 Year
  Sex: Male

DRUGS (52)
  1. NEVIRAPINE TABLET [Suspect]
     Active Substance: NEVIRAPINE
     Dosage: UNK
     Route: 048
  2. DELAVIRDINE MESYLATE [Suspect]
     Active Substance: DELAVIRDINE MESYLATE
     Indication: HIV INFECTION
     Dosage: UNK
     Route: 048
  3. DIDANOSINE. [Suspect]
     Active Substance: DIDANOSINE
     Indication: HIV INFECTION
     Dosage: UNK
     Route: 065
  4. NELFINAVIR MESYLATE [Suspect]
     Active Substance: NELFINAVIR MESYLATE
     Dosage: UNK
     Route: 065
  5. RALTEGRAVIR. [Suspect]
     Active Substance: RALTEGRAVIR
     Indication: HIV INFECTION
     Dosage: 400 MILLIGRAM, ONCE A DAY
     Route: 048
  6. DARUNAVIR [Suspect]
     Active Substance: DARUNAVIR
     Indication: ANTIRETROVIRAL THERAPY
     Dosage: UNK
     Route: 065
  7. PREZISTA [Suspect]
     Active Substance: DARUNAVIR ETHANOLATE
     Indication: HIV INFECTION
     Dosage: UNK
     Route: 048
  8. T-20 [Suspect]
     Active Substance: ENFUVIRTIDE
     Indication: HIV INFECTION
     Dosage: UNK
     Route: 065
  9. ABACAVIR SULFATE. [Suspect]
     Active Substance: ABACAVIR SULFATE
     Indication: HIV INFECTION
     Dosage: UNK
     Route: 048
  10. SAQUINAVIR [Suspect]
     Active Substance: SAQUINAVIR
     Indication: HIV INFECTION
     Dosage: UNK
     Route: 048
  11. ZERIT [Suspect]
     Active Substance: STAVUDINE
     Indication: HIV INFECTION
     Dosage: UNK
     Route: 065
  12. ABACAVIR SUCCINATE [Suspect]
     Active Substance: ABACAVIR SUCCINATE
     Indication: HIV INFECTION
     Dosage: UNK
     Route: 065
  13. DARUNAVIR [Suspect]
     Active Substance: DARUNAVIR
     Indication: HIV INFECTION
     Dosage: UNK
     Route: 065
  14. CRIXIVAN [Suspect]
     Active Substance: INDINAVIR SULFATE
     Indication: HIV INFECTION
     Dosage: UNK
     Route: 048
  15. STAVUDINE. [Suspect]
     Active Substance: STAVUDINE
     Indication: HIV INFECTION
     Dosage: UNK
     Route: 048
  16. VIDEX EC [Suspect]
     Active Substance: DIDANOSINE
     Indication: HIV INFECTION
     Dosage: UNK
     Route: 048
  17. EFAVIRENZ. [Suspect]
     Active Substance: EFAVIRENZ
     Indication: HIV INFECTION
     Dosage: UNK
     Route: 048
  18. LAMIVUDINE. [Suspect]
     Active Substance: LAMIVUDINE
     Indication: HIV INFECTION
  19. ABACAVIR SULFATE. [Suspect]
     Active Substance: ABACAVIR SULFATE
     Indication: ANTIRETROVIRAL THERAPY
  20. LOPINAVIR [Suspect]
     Active Substance: LOPINAVIR
     Indication: HIV INFECTION
     Dosage: UNK
     Route: 065
  21. VIREAD [Suspect]
     Active Substance: TENOFOVIR DISOPROXIL FUMARATE
     Indication: HIV INFECTION
     Dosage: UNK
     Route: 048
  22. ZIAGEN [Suspect]
     Active Substance: ABACAVIR SULFATE
     Indication: PRODUCT USED FOR UNKNOWN INDICATION
     Dosage: UNK
     Route: 065
  23. ETRAVIRINE [Suspect]
     Active Substance: ETRAVIRINE
     Indication: HIV INFECTION
     Dosage: UNK
     Route: 048
  24. INTELENCE [Suspect]
     Active Substance: ETRAVIRINE
     Indication: HIV INFECTION
     Dosage: UNK
     Route: 048
  25. NORVIR [Suspect]
     Active Substance: RITONAVIR
     Indication: ANTIRETROVIRAL THERAPY
  26. ABACAVIR SUCCINATE [Suspect]
     Active Substance: ABACAVIR SUCCINATE
     Indication: ANTIRETROVIRAL THERAPY
  27. ISENTRESS [Suspect]
     Active Substance: RALTEGRAVIR POTASSIUM
     Dosage: UNK
     Route: 065
  28. RALTEGRAVIR POTASSIUM [Suspect]
     Active Substance: RALTEGRAVIR POTASSIUM
     Indication: HIV INFECTION
     Dosage: 400 MILLIGRAM
     Route: 048
  29. SUSTIVA [Suspect]
     Active Substance: EFAVIRENZ
     Indication: HIV INFECTION
     Dosage: UNK
     Route: 048
  30. KALETRA [Suspect]
     Active Substance: LOPINAVIR\RITONAVIR
     Indication: HIV INFECTION
     Dosage: UNK
     Route: 048
  31. ETRAVIRINE [Suspect]
     Active Substance: ETRAVIRINE
     Indication: HIV INFECTION
     Dosage: UNK
     Route: 048
  32. FUZEON [Suspect]
     Active Substance: ENFUVIRTIDE
     Indication: PRODUCT USED FOR UNKNOWN INDICATION
     Dosage: UNK
     Route: 058
  33. VIRACEPT [Suspect]
     Active Substance: NELFINAVIR MESYLATE
     Indication: HIV INFECTION
     Dosage: UNK
     Route: 065
  34. LAMIVUDINE. [Suspect]
     Active Substance: LAMIVUDINE
     Indication: ANTIRETROVIRAL THERAPY
     Dosage: UNK
     Route: 065
  35. NEVIRAPINE. [Suspect]
     Active Substance: NEVIRAPINE
     Indication: HIV INFECTION
     Dosage: UNK
     Route: 048
  36. ZIDOVUDINE. [Suspect]
     Active Substance: ZIDOVUDINE
     Indication: HIV INFECTION
     Dosage: UNK
     Route: 048
  37. LOPINAVIR/RITONAVIR [Suspect]
     Active Substance: LOPINAVIR\RITONAVIR
     Indication: HIV INFECTION
     Dosage: UNK
     Route: 065
  38. NELFINAVIR MESYLATE [Suspect]
     Active Substance: NELFINAVIR MESYLATE
     Indication: HIV INFECTION
     Dosage: UNK
     Route: 048
  39. RITONAVIR. [Suspect]
     Active Substance: RITONAVIR
     Indication: HIV INFECTION
     Dosage: UNK
     Route: 065
  40. RITONAVIR. [Suspect]
     Active Substance: RITONAVIR
     Dosage: UNK
     Route: 065
  41. ETRAVIRINE [Suspect]
     Active Substance: ETRAVIRINE
     Indication: ANTIRETROVIRAL THERAPY
     Dosage: UNK
     Route: 065
  42. RESCRIPTOR [Suspect]
     Active Substance: DELAVIRDINE MESYLATE
     Indication: HIV INFECTION
     Dosage: UNK
     Route: 048
  43. VIRAMUNE [Suspect]
     Active Substance: NEVIRAPINE
     Indication: HIV INFECTION
     Dosage: UNK
     Route: 048
  44. NEVIRAPINE TABLET [Suspect]
     Active Substance: NEVIRAPINE
     Indication: HIV INFECTION
     Dosage: UNK
     Route: 048
  45. DARUNAVIR [Suspect]
     Active Substance: DARUNAVIR
     Indication: HIV INFECTION
     Dosage: UNK
     Route: 065
  46. ENFUVIRTIDE. [Suspect]
     Active Substance: ENFUVIRTIDE
     Indication: HIV INFECTION
     Dosage: UNK
     Route: 058
  47. INDINAVIR SULFATE [Suspect]
     Active Substance: INDINAVIR SULFATE
     Indication: HIV INFECTION
     Dosage: UNK
     Route: 048
  48. NORVIR [Suspect]
     Active Substance: RITONAVIR
     Indication: HIV INFECTION
     Dosage: UNK
     Route: 065
  49. TENOFOVIR DISOPROXIL FUMARATE. [Suspect]
     Active Substance: TENOFOVIR DISOPROXIL FUMARATE
     Indication: HIV INFECTION
     Dosage: UNK
     Route: 048
  50. STAVUDINE. [Suspect]
     Active Substance: STAVUDINE
     Indication: HIV INFECTION
     Dosage: UNK
     Route: 048
  51. DELAVIRDINE MESYLATE [Suspect]
     Active Substance: DELAVIRDINE MESYLATE
     Indication: HIV INFECTION
     Dosage: UNK
     Route: 048
  52. ISENTRESS [Suspect]
     Active Substance: RALTEGRAVIR POTASSIUM
     Indication: HIV INFECTION
     Dosage: 400 MILLIGRAM
     Route: 048

REACTIONS (7)
  - Lipodystrophy acquired [Recovering/Resolving]
  - Progressive external ophthalmoplegia [Recovering/Resolving]
  - Extraocular muscle paresis [Recovering/Resolving]
  - Eyelid ptosis [Recovering/Resolving]
  - Diplopia [Recovering/Resolving]
  - Mitochondrial toxicity [Recovering/Resolving]
  - Ophthalmoplegia [Recovering/Resolving]
